FAERS Safety Report 8902013 (Version 2)
Quarter: 2012Q4

REPORT INFORMATION
  Report Type: 
  Country: FR (occurrence: FR)
  Receive Date: 20121109
  Receipt Date: 20121115
  Transmission Date: 20130627
  Serious: Yes (Hospitalization)
  Sender: FDA-Public Use
  Company Number: FR-ABBOTT-12P-056-1006777-00

PATIENT
  Sex: Female

DRUGS (22)
  1. ENANTONE [Suspect]
     Indication: IN VITRO FERTILISATION
     Route: 030
     Dates: start: 2002, end: 2002
  2. UTROGESTAN [Suspect]
     Indication: IN VITRO FERTILISATION
     Route: 048
     Dates: start: 1995, end: 1995
  3. UTROGESTAN [Suspect]
     Route: 048
     Dates: start: 1996, end: 1996
  4. UTROGESTAN [Suspect]
     Route: 048
     Dates: start: 1997, end: 1997
  5. UTROGESTAN [Suspect]
     Route: 048
     Dates: start: 1998, end: 1998
  6. DECAPEPTYL [Suspect]
     Indication: IN VITRO FERTILISATION
     Route: 065
     Dates: start: 1993, end: 1993
  7. DECAPEPTYL [Suspect]
     Route: 065
     Dates: start: 1994, end: 1994
  8. DECAPEPTYL [Suspect]
     Route: 065
     Dates: start: 1996, end: 1996
  9. DECAPEPTYL [Suspect]
     Route: 065
     Dates: start: 1998, end: 1998
  10. UROFOLLITROPIN [Suspect]
     Indication: IN VITRO FERTILISATION
     Route: 030
     Dates: start: 1994, end: 1994
  11. UROFOLLITROPIN [Suspect]
     Route: 030
     Dates: start: 1995, end: 1995
  12. UROFOLLITROPIN [Suspect]
     Route: 030
     Dates: start: 1996, end: 1996
  13. MENOTROPINS [Suspect]
     Indication: IN VITRO FERTILISATION
     Dates: start: 1994, end: 1994
  14. MENOTROPINS [Suspect]
     Dates: start: 1995, end: 1995
  15. HUMEGON [Suspect]
     Indication: IN VITRO FERTILISATION
     Route: 030
     Dates: start: 1996, end: 1996
  16. GONAL-F [Suspect]
     Indication: IN VITRO FERTILISATION
     Route: 058
     Dates: start: 1997, end: 1997
  17. GONAL-F [Suspect]
     Route: 058
     Dates: start: 1998, end: 1998
  18. SURGESTONE [Suspect]
     Indication: IN VITRO FERTILISATION
     Route: 048
     Dates: start: 1994, end: 1994
  19. SURGESTONE [Suspect]
     Indication: ENDOMETRIOSIS
     Route: 048
     Dates: start: 1995, end: 1995
  20. SURGESTONE [Suspect]
     Route: 048
     Dates: start: 1996, end: 1996
  21. SURGESTONE [Suspect]
     Route: 048
     Dates: start: 1997, end: 1997
  22. SURGESTONE [Suspect]
     Route: 048
     Dates: start: 2012

REACTIONS (1)
  - Breast cancer [Not Recovered/Not Resolved]
